FAERS Safety Report 6014827-6 (Version None)
Quarter: 2008Q4

REPORT INFORMATION
  Report Type: 
  Country: None (occurrence: None)
  Receive Date: 20081219
  Receipt Date: 20080314
  Transmission Date: 20090506
  Serious: No
  Sender: FDA-Public Use
  Company Number: A0715537A

PATIENT
  Sex: Male

DRUGS (2)
  1. AVODART [Suspect]
     Indication: BENIGN PROSTATIC HYPERPLASIA
     Route: 048
     Dates: start: 20071201
  2. FLOMAX [Concomitant]

REACTIONS (5)
  - DIARRHOEA [None]
  - ERECTILE DYSFUNCTION [None]
  - FLATULENCE [None]
  - PRURITUS [None]
  - RASH [None]
